FAERS Safety Report 24539103 (Version 1)
Quarter: 2024Q4

REPORT INFORMATION
  Report Type: Report from Study
  Country: IE (occurrence: IE)
  Receive Date: 20241023
  Receipt Date: 20241023
  Transmission Date: 20250115
  Serious: Yes (Other)
  Sender: ALEXION PHARMACEUTICALS
  Company Number: IE-AstraZeneca-2023A120458

PATIENT

DRUGS (35)
  1. FASENRA [Suspect]
     Active Substance: BENRALIZUMAB
     Indication: Asthma
     Dosage: UNK
  2. FASENRA [Suspect]
     Active Substance: BENRALIZUMAB
     Dosage: UNK
  3. FASENRA [Suspect]
     Active Substance: BENRALIZUMAB
     Dosage: UNK
  4. FASENRA [Suspect]
     Active Substance: BENRALIZUMAB
     Dosage: UNK
  5. FASENRA [Suspect]
     Active Substance: BENRALIZUMAB
  6. FASENRA [Suspect]
     Active Substance: BENRALIZUMAB
  7. FASENRA [Suspect]
     Active Substance: BENRALIZUMAB
  8. FASENRA [Suspect]
     Active Substance: BENRALIZUMAB
  9. FASENRA [Suspect]
     Active Substance: BENRALIZUMAB
  10. FASENRA [Suspect]
     Active Substance: BENRALIZUMAB
  11. FASENRA [Suspect]
     Active Substance: BENRALIZUMAB
  12. FASENRA [Suspect]
     Active Substance: BENRALIZUMAB
  13. FASENRA [Suspect]
     Active Substance: BENRALIZUMAB
     Dosage: 30 MILLIGRAM, UNK
  14. FASENRA [Suspect]
     Active Substance: BENRALIZUMAB
     Dosage: 30 MILLIGRAM, UNK
  15. FASENRA [Suspect]
     Active Substance: BENRALIZUMAB
     Dosage: 30 MILLIGRAM, UNK
  16. FASENRA [Suspect]
     Active Substance: BENRALIZUMAB
     Dosage: 30 MILLIGRAM, UNK
  17. FASENRA [Suspect]
     Active Substance: BENRALIZUMAB
     Dosage: 30 MILLIGRAM, UNK
  18. FASENRA [Suspect]
     Active Substance: BENRALIZUMAB
     Dosage: 30 MILLIGRAM, UNK
  19. FASENRA [Suspect]
     Active Substance: BENRALIZUMAB
     Dosage: 30 MILLIGRAM, UNK
  20. FASENRA [Suspect]
     Active Substance: BENRALIZUMAB
     Dosage: 30 MILLIGRAM, UNK
  21. BISOPIN [Concomitant]
     Dosage: 40 MILLIGRAM, QD
  22. MONTELUKAST [Concomitant]
     Active Substance: MONTELUKAST
     Dosage: 10 MILLIGRAM, QD
  23. CHOLECALCIFEROL [Concomitant]
     Active Substance: CHOLECALCIFEROL
     Dosage: 800 MILLIGRAM, QD
  24. THEOPHYLLINE ANHYDROUS [Concomitant]
     Active Substance: THEOPHYLLINE ANHYDROUS
     Dosage: 200 MILLIGRAM, QD
  25. LOSARTAN [Concomitant]
     Active Substance: LOSARTAN
     Dosage: 50 MILLIGRAM, QD
  26. LEVOTHYROXINE [Concomitant]
     Active Substance: LEVOTHYROXINE
     Dosage: 100 MILLIGRAM, QD
  27. PANTIUM [Concomitant]
     Dosage: 40 MILLIGRAM, QD
  28. BUMETANIDE [Concomitant]
     Active Substance: BUMETANIDE
     Dosage: 1 MILLIGRAM, QD
  29. FEXOFENADINE [Concomitant]
     Active Substance: FEXOFENADINE HYDROCHLORIDE
     Dosage: 180 MILLIGRAM, QD
  30. XARELTO [Concomitant]
     Active Substance: RIVAROXABAN
     Dosage: 20 MILLIGRAM, QD
  31. VESITRIM [Concomitant]
     Dosage: 10 MILLIGRAM, QD
  32. SERETIDE [Concomitant]
     Active Substance: FLUTICASONE PROPIONATE\SALMETEROL XINAFOATE
     Dosage: 500 MILLIGRAM, BID
  33. SPIRIVA [Concomitant]
     Active Substance: TIOTROPIUM BROMIDE MONOHYDRATE
     Dosage: 2.5 MILLIGRAM, QD
  34. UNSPECIFIED INGREDIENT [Concomitant]
     Active Substance: UNSPECIFIED INGREDIENT
  35. UNSPECIFIED INGREDIENT [Concomitant]
     Active Substance: UNSPECIFIED INGREDIENT

REACTIONS (3)
  - Dyspnoea [Not Recovered/Not Resolved]
  - Lower respiratory tract infection [Recovering/Resolving]
  - Cough [Unknown]
